FAERS Safety Report 12736218 (Version 2)
Quarter: 2016Q3

REPORT INFORMATION
  Report Type: Spontaneous
  Country: AT (occurrence: AT)
  Receive Date: 20160913
  Receipt Date: 20160915
  Transmission Date: 20161109
  Serious: Yes (Hospitalization)
  Sender: FDA-Public Use
  Company Number: AT-ABBVIE-16K-009-1725427-00

PATIENT
  Sex: Female
  Weight: 38 kg

DRUGS (2)
  1. DUODOPA [Suspect]
     Active Substance: CARBIDOPA\LEVODOPA
     Dosage: 16H THERAPY:MD: 6.5ML,CR: 2.4ML/H,ED: 2.0 ML
     Route: 050
  2. DUODOPA [Suspect]
     Active Substance: CARBIDOPA\LEVODOPA
     Indication: PARKINSON^S DISEASE
     Dosage: 16H THERAPY:MD. 6.5ML; CR: 2.8ML/H; ED: 1.5ML
     Route: 050
     Dates: start: 20130912

REACTIONS (5)
  - Infection [Unknown]
  - Weight decreased [Not Recovered/Not Resolved]
  - Hyperkinesia [Unknown]
  - General physical health deterioration [Not Recovered/Not Resolved]
  - Diarrhoea [Unknown]
